FAERS Safety Report 7337918-6 (Version None)
Quarter: 2011Q1

REPORT INFORMATION
  Report Type: 
  Country: None (occurrence: None)
  Receive Date: 20110308
  Receipt Date: 20110209
  Transmission Date: 20110831
  Serious: No
  Sender: FDA-Public Use
  Company Number: US-B.I. PHARMACEUTICALS,INC./RIDGEFIELD-2011-BP-01057BP

PATIENT
  Sex: Male

DRUGS (4)
  1. VERAPAMIL [Concomitant]
     Indication: HYPERTENSION
  2. HYDROCHLOROTHIAZIDE [Concomitant]
     Indication: CARDIAC DISORDER
  3. MIRAPEX [Concomitant]
     Indication: RESTLESS LEGS SYNDROME
  4. PRADAXA [Suspect]
     Indication: ATRIAL FIBRILLATION
     Dosage: 300 MG
     Route: 048
     Dates: start: 20110106, end: 20110108

REACTIONS (4)
  - DYSPEPSIA [None]
  - VOMITING [None]
  - OESOPHAGEAL DISCOMFORT [None]
  - DIARRHOEA [None]
